FAERS Safety Report 9589272 (Version 1)
Quarter: 2013Q4

REPORT INFORMATION
  Report Type: Spontaneous
  Country: US (occurrence: US)
  Receive Date: 20131003
  Receipt Date: 20131003
  Transmission Date: 20140711
  Serious: No
  Sender: FDA-Public Use
  Company Number: US-AMGEN-USASP2012069445

PATIENT
  Age: 47 Year
  Sex: Female
  Weight: 88.89 kg

DRUGS (7)
  1. ENBREL [Suspect]
     Indication: PRODUCT USED FOR UNKNOWN INDICATION
     Dosage: 50 MG, QWK
     Route: 058
  2. VITAMIN D                          /00318501/ [Concomitant]
     Dosage: UNK
  3. CALTRATE D                         /00944201/ [Concomitant]
     Dosage: 600 UNK, UNK
  4. DIOVAN [Concomitant]
     Dosage: 40 MG, UNK
  5. LEVOXYL [Concomitant]
     Dosage: 25 MUG, UNK
  6. FOLIC ACID [Concomitant]
     Dosage: UNK
  7. METHOTREXATE [Concomitant]
     Dosage: 2.5 MG, UNK

REACTIONS (1)
  - Sinusitis [Unknown]
